FAERS Safety Report 7332710-0 (Version None)
Quarter: 2011Q1

REPORT INFORMATION
  Report Type: 
  Country: None (occurrence: None)
  Receive Date: 20110304
  Receipt Date: 20110225
  Transmission Date: 20110831
  Serious: Yes (Hospitalization)
  Sender: FDA-Public Use
  Company Number: FR-PFIZER INC-FR-WYE-G06719410

PATIENT
  Age: 19 Year
  Sex: Male

DRUGS (2)
  1. EFFEXOR XR [Suspect]
     Indication: DEPRESSION
     Dosage: 75 MG, 1X/DAY
     Route: 048
     Dates: start: 20090201, end: 20090201
  2. XANAX [Suspect]
     Dosage: .25 MG, 3X/DAY
     Route: 048
     Dates: start: 20090201, end: 20090201

REACTIONS (6)
  - MYALGIA [None]
  - PLEURAL EFFUSION [None]
  - INTERSTITIAL LUNG DISEASE [None]
  - HEADACHE [None]
  - ALVEOLITIS ALLERGIC [None]
  - ACUTE RESPIRATORY DISTRESS SYNDROME [None]
